FAERS Safety Report 9891627 (Version 1)
Quarter: 2014Q1

REPORT INFORMATION
  Report Type: Spontaneous
  Country: FR (occurrence: FR)
  Receive Date: 20140212
  Receipt Date: 20140212
  Transmission Date: 20141002
  Serious: Yes (Hospitalization, Other)
  Sender: FDA-Public Use
  Company Number: FR-PFIZER INC-2014035168

PATIENT
  Age: 99 Year
  Sex: Female

DRUGS (13)
  1. LYRICA [Suspect]
     Indication: ABNORMAL BEHAVIOUR
     Dosage: 50 MG, DAILY (2 DF OF 25MG DAILY)
     Route: 048
     Dates: start: 201308
  2. LYRICA [Suspect]
     Dosage: 125 MG, DAILY (5 DF OF 25MG DAILY)
     Route: 048
     Dates: end: 20130812
  3. OXAZEPAM AYERST [Concomitant]
     Dosage: UNK
     Route: 048
     Dates: start: 201308
  4. AMIODARONE [Concomitant]
     Dosage: 1 DF, DAILY
     Route: 048
  5. KARDEGIC [Concomitant]
     Dosage: 75 MG, DAILY
     Route: 048
  6. FUROSEMIDE [Concomitant]
     Dosage: 60 MG, DAILY
     Route: 048
  7. LERCAN [Concomitant]
     Dosage: 20 MG, DAILY
     Route: 048
  8. MIANSERIN HYDROCHLORIDE [Concomitant]
     Dosage: 10 MG, DAILY
     Route: 048
  9. OGAST [Concomitant]
     Dosage: 1 DF, DAILY
     Route: 048
  10. DAFALGAN [Concomitant]
     Dosage: 2 DF OF 500 MG, 3X/DAY
     Route: 048
  11. SPASFON [Concomitant]
     Dosage: 3 DF, DAILY
     Route: 048
  12. NEBIVOLOL [Concomitant]
     Dosage: 2.5 MG, DAILY
     Route: 048
  13. SERESTA [Concomitant]
     Dosage: UNK
     Route: 048
     Dates: end: 201308

REACTIONS (8)
  - Off label use [Unknown]
  - Hyponatraemia [Recovered/Resolved]
  - Creatinine renal clearance decreased [Unknown]
  - Blood creatinine increased [Unknown]
  - Tremor [Recovered/Resolved]
  - Gait disturbance [Recovered/Resolved]
  - Headache [Recovered/Resolved]
  - Agitation [Unknown]
